FAERS Safety Report 23526301 (Version 10)
Quarter: 2025Q2

REPORT INFORMATION
  Report Type: Spontaneous
  Country: AT (occurrence: AT)
  Receive Date: 20240215
  Receipt Date: 20250606
  Transmission Date: 20250717
  Serious: Yes (Hospitalization, Other)
  Sender: CHEPLAPHARM
  Company Number: AT-ROCHE-2215193

PATIENT
  Age: 63 Year
  Sex: Female
  Weight: 80.4 kg

DRUGS (135)
  1. CAPECITABINE [Suspect]
     Active Substance: CAPECITABINE
     Indication: Breast cancer metastatic
     Dosage: MOST RECENT DOSE PRIOR TO THE EVENT LYMPH NODE METASTATIS AXILLA AND PORT A CATH INFECTION: 08/JA...
     Route: 048
     Dates: start: 20191002, end: 20200107
  2. CAPECITABINE [Suspect]
     Active Substance: CAPECITABINE
     Indication: Breast cancer metastatic
     Dosage: DAILY DOSE: 3000 MILLIGRAM
     Route: 048
     Dates: start: 20200108, end: 20200421
  3. CAPECITABINE [Suspect]
     Active Substance: CAPECITABINE
     Indication: Breast cancer metastatic
     Dosage: DAILY FOR 2 WEEKS THEN PAUSE FOR 1 WEEK?DAILY DOSE: 2000 MILLIGRAM
     Route: 048
     Dates: start: 20201230, end: 20210203
  4. CAPECITABINE [Suspect]
     Active Substance: CAPECITABINE
     Indication: Breast cancer metastatic
     Dosage: DAILY DOSE: 3500 MILLIGRAM
     Route: 048
     Dates: start: 20210210, end: 20210224
  5. KADCYLA [Suspect]
     Active Substance: ADO-TRASTUZUMAB EMTANSINE
     Indication: Breast cancer metastatic
     Route: 042
     Dates: start: 20170224, end: 20170317
  6. KADCYLA [Suspect]
     Active Substance: ADO-TRASTUZUMAB EMTANSINE
     Indication: Breast cancer metastatic
     Route: 042
     Dates: start: 20170519, end: 20170519
  7. KADCYLA [Suspect]
     Active Substance: ADO-TRASTUZUMAB EMTANSINE
     Indication: Breast cancer metastatic
     Route: 042
     Dates: start: 20190306, end: 20190909
  8. KADCYLA [Suspect]
     Active Substance: ADO-TRASTUZUMAB EMTANSINE
     Indication: Breast cancer metastatic
     Route: 042
     Dates: start: 20190306, end: 20190909
  9. TYKERB [Suspect]
     Active Substance: LAPATINIB DITOSYLATE
     Indication: Breast cancer metastatic
     Dosage: MOST RECENT DOSE PRIOR TO THE EVENT LYMPH NODE METASTATIS AXILLA AND PORT A CATH INFECTION: 08/JA...
     Route: 048
     Dates: start: 20191002, end: 20200107
  10. TYKERB [Suspect]
     Active Substance: LAPATINIB DITOSYLATE
     Indication: Breast cancer metastatic
     Dosage: DAILY DOSE: 1000 MILLIGRAM
     Route: 048
     Dates: start: 20200108, end: 20200421
  11. NAVELBINE [Suspect]
     Active Substance: VINORELBINE TARTRATE
     Indication: Breast cancer metastatic
     Route: 042
     Dates: start: 20200422, end: 20200722
  12. BLEOMYCIN [Suspect]
     Active Substance: BLEOMYCIN SULFATE
     Indication: Breast cancer metastatic
     Dosage: DRUG WAS DISCONTINUED AS PLANNED NUMBER OF CYCLES COMPLETED?DAILY DOSE: 26.85 MILLIGRAM
     Route: 042
     Dates: start: 20200519, end: 20200519
  13. BLEOMYCIN [Suspect]
     Active Substance: BLEOMYCIN SULFATE
     Indication: Breast cancer metastatic
     Dosage: DRUG WAS DISCONTINUED AS PLANNED NUMBER OF CYCLES COMPLETED?DAILY DOSE: 1 DOSAGE FORM
     Route: 042
     Dates: start: 20210105, end: 20210105
  14. TAXOTERE [Suspect]
     Active Substance: DOCETAXEL
     Indication: Breast cancer metastatic
     Route: 042
     Dates: start: 20170224, end: 20170224
  15. TAXOTERE [Suspect]
     Active Substance: DOCETAXEL
     Indication: Breast cancer metastatic
     Dosage: MOST RECENT DOSE PRIOR TO THE EVENTS: 09/JUN/2017
     Route: 042
     Dates: start: 20170224, end: 20170317
  16. TAXOTERE [Suspect]
     Active Substance: DOCETAXEL
     Indication: Breast cancer metastatic
     Route: 042
     Dates: start: 20170224, end: 20170317
  17. TAXOTERE [Suspect]
     Active Substance: DOCETAXEL
     Indication: Breast cancer metastatic
     Route: 042
     Dates: start: 20170317, end: 20170317
  18. TAXOTERE [Suspect]
     Active Substance: DOCETAXEL
     Indication: Breast cancer metastatic
     Route: 042
     Dates: start: 20170410, end: 20170427
  19. TAXOTERE [Suspect]
     Active Substance: DOCETAXEL
     Indication: Breast cancer metastatic
     Route: 042
     Dates: start: 20170410, end: 20170427
  20. TAXOTERE [Suspect]
     Active Substance: DOCETAXEL
     Indication: Breast cancer metastatic
     Route: 042
     Dates: start: 20170519, end: 20170519
  21. TAXOTERE [Suspect]
     Active Substance: DOCETAXEL
     Indication: Breast cancer metastatic
     Route: 042
     Dates: start: 20170519, end: 20170519
  22. TAXOTERE [Suspect]
     Active Substance: DOCETAXEL
     Indication: Breast cancer metastatic
     Route: 042
     Dates: start: 20170609, end: 20170630
  23. TAXOTERE [Suspect]
     Active Substance: DOCETAXEL
     Indication: Breast cancer metastatic
     Route: 042
     Dates: start: 20170609, end: 20170630
  24. TAXOTERE [Suspect]
     Active Substance: DOCETAXEL
     Indication: Breast cancer metastatic
     Route: 042
     Dates: start: 20170720, end: 20170720
  25. TAXOTERE [Suspect]
     Active Substance: DOCETAXEL
     Indication: Breast cancer metastatic
     Route: 042
     Dates: start: 20170720, end: 20170720
  26. TAXOTERE [Suspect]
     Active Substance: DOCETAXEL
     Indication: Breast cancer metastatic
     Route: 042
     Dates: start: 20170818, end: 20190213
  27. TAXOTERE [Suspect]
     Active Substance: DOCETAXEL
     Indication: Breast cancer metastatic
     Route: 042
     Dates: start: 20190213
  28. TAXOTERE [Suspect]
     Active Substance: DOCETAXEL
     Indication: Breast cancer metastatic
     Route: 042
     Dates: start: 20200422, end: 20200624
  29. TAXOTERE [Suspect]
     Active Substance: DOCETAXEL
     Indication: Breast cancer metastatic
     Route: 042
     Dates: start: 20201230, end: 20210210
  30. TAXOTERE [Suspect]
     Active Substance: DOCETAXEL
     Indication: Breast cancer metastatic
     Route: 042
     Dates: start: 20210317, end: 20210428
  31. TAXOTERE [Suspect]
     Active Substance: DOCETAXEL
     Indication: Breast cancer metastatic
     Route: 042
     Dates: start: 20210317, end: 20210428
  32. TAXOTERE [Suspect]
     Active Substance: DOCETAXEL
     Indication: Breast cancer metastatic
     Route: 042
     Dates: start: 20210317, end: 20210428
  33. TAXOTERE [Suspect]
     Active Substance: DOCETAXEL
     Indication: Breast cancer metastatic
     Route: 042
     Dates: start: 20210519, end: 20210519
  34. HERCEPTIN [Suspect]
     Active Substance: TRASTUZUMAB
     Indication: Breast cancer metastatic
     Dosage: MOST RECENT DOSE PRIOR TO THE EVENTS: 10/AUG/2017?DAILY DOSE: 624 MILLIGRAM
     Route: 042
     Dates: start: 20170224, end: 20170224
  35. HERCEPTIN [Suspect]
     Active Substance: TRASTUZUMAB
     Indication: Breast cancer metastatic
     Dosage: MOST RECENT DOSE PRIOR TO THE EVENTS: 10/AUG/2017?DAILY DOSE: 468 MILLIGRAM
     Route: 042
     Dates: start: 20170317, end: 20170317
  36. HERCEPTIN [Suspect]
     Active Substance: TRASTUZUMAB
     Indication: Breast cancer metastatic
     Route: 042
     Dates: start: 20170410, end: 20170427
  37. HERCEPTIN [Suspect]
     Active Substance: TRASTUZUMAB
     Indication: Breast cancer metastatic
     Route: 042
     Dates: start: 20170519, end: 20170519
  38. HERCEPTIN [Suspect]
     Active Substance: TRASTUZUMAB
     Indication: Breast cancer metastatic
     Route: 042
     Dates: start: 20170609, end: 20170630
  39. HERCEPTIN [Suspect]
     Active Substance: TRASTUZUMAB
     Indication: Breast cancer metastatic
     Route: 042
     Dates: start: 20170720, end: 20170720
  40. HERCEPTIN [Suspect]
     Active Substance: TRASTUZUMAB
     Indication: Breast cancer metastatic
     Route: 042
     Dates: start: 20170810, end: 20190213
  41. HERCEPTIN [Suspect]
     Active Substance: TRASTUZUMAB
     Indication: Breast cancer metastatic
     Route: 042
     Dates: start: 20200422, end: 20200615
  42. HERCEPTIN [Suspect]
     Active Substance: TRASTUZUMAB
     Indication: Breast cancer metastatic
     Route: 042
     Dates: start: 20201230, end: 20210210
  43. HERCEPTIN [Suspect]
     Active Substance: TRASTUZUMAB
     Indication: Breast cancer metastatic
     Route: 042
     Dates: start: 20210317, end: 20210428
  44. PERJETA [Suspect]
     Active Substance: PERTUZUMAB
     Indication: Breast cancer metastatic
     Dosage: MOST RECENT DOSE PRIOR TO THE EVENT WORSENING OF BRAIN METASTASES: 17/MAR/2017
     Route: 042
     Dates: start: 20170224, end: 20170224
  45. PERJETA [Suspect]
     Active Substance: PERTUZUMAB
     Indication: Breast cancer metastatic
     Dosage: DAILY DOSE: 420 MILLIGRAM
     Route: 042
     Dates: start: 20170317, end: 20190213
  46. PERJETA [Suspect]
     Active Substance: PERTUZUMAB
     Indication: Breast cancer metastatic
     Dosage: DAILY DOSE: 840 MILLIGRAM
     Route: 042
     Dates: start: 20200422, end: 20200615
  47. PERJETA [Suspect]
     Active Substance: PERTUZUMAB
     Indication: Breast cancer metastatic
     Dosage: DAILY DOSE: 840 MILLIGRAM
     Route: 042
     Dates: start: 20210317, end: 20210428
  48. FASLODEX [Suspect]
     Active Substance: FULVESTRANT
     Indication: Breast cancer metastatic
     Dosage: TWICE A WEEK/MOST RECENT DOSE PRIOR TO THE EVENT LYMPH NODE METASTATIS AXILLA AND PORT A CATH INF...
     Route: 030
     Dates: start: 20171002, end: 20171115
  49. FASLODEX [Suspect]
     Active Substance: FULVESTRANT
     Indication: Breast cancer metastatic
     Route: 030
     Dates: start: 20171116, end: 20191001
  50. FAM-TRASTUZUMAB DERUXTECAN-NXKI [Suspect]
     Active Substance: FAM-TRASTUZUMAB DERUXTECAN-NXKI
     Indication: Breast cancer metastatic
     Dosage: DAILY DOSE: 624 MILLIGRAM
     Route: 058
     Dates: start: 20200814, end: 20201015
  51. DENOSUMAB [Suspect]
     Active Substance: DENOSUMAB
     Indication: Breast cancer metastatic
     Route: 042
     Dates: start: 20201230, end: 20210210
  52. TUCATINIB [Suspect]
     Active Substance: TUCATINIB
     Indication: Breast cancer metastatic
     Dosage: DAILY DOSE: 600 MILLIGRAM
     Route: 048
     Dates: start: 20201230, end: 20210210
  53. DOXIL [Suspect]
     Active Substance: DOXORUBICIN HYDROCHLORIDE
     Indication: Breast cancer metastatic
     Route: 042
     Dates: start: 20210608, end: 20210608
  54. ADRIACIN [Suspect]
     Active Substance: DOXORUBICIN HYDROCHLORIDE
     Indication: Breast cancer metastatic
     Dates: start: 20210608, end: 20210608
  55. VITAMINS WITH MINERALS [Concomitant]
     Active Substance: MINERALS\VITAMINS
     Dates: start: 20170203, end: 20210612
  56. EDOXABAN TOSYLATE [Concomitant]
     Active Substance: EDOXABAN TOSYLATE
     Dates: start: 20191120, end: 20200608
  57. EDOXABAN TOSYLATE [Concomitant]
     Active Substance: EDOXABAN TOSYLATE
     Dates: start: 20200613, end: 20210611
  58. EMEND [Concomitant]
     Active Substance: APREPITANT
     Dates: start: 20200428, end: 20200430
  59. Paspertin [Concomitant]
     Indication: Gastrointestinal disorder
     Dates: start: 20200506, end: 20201212
  60. Paspertin [Concomitant]
     Indication: Gastrointestinal disorder
     Dates: start: 20210608, end: 20210623
  61. PANTOPRAZOLE SODIUM [Concomitant]
     Active Substance: PANTOPRAZOLE SODIUM
     Indication: Gastrointestinal disorder
     Dosage: DAILY
     Route: 048
     Dates: start: 20170721
  62. PANTOPRAZOLE SODIUM [Concomitant]
     Active Substance: PANTOPRAZOLE SODIUM
     Indication: Gastrointestinal disorder
     Route: 048
     Dates: start: 20170722, end: 20180327
  63. PANTOPRAZOLE SODIUM [Concomitant]
     Active Substance: PANTOPRAZOLE SODIUM
     Indication: Gastrointestinal disorder
     Dates: start: 20200506, end: 20200519
  64. PANTOPRAZOLE SODIUM [Concomitant]
     Active Substance: PANTOPRAZOLE SODIUM
     Indication: Gastrointestinal disorder
     Dates: start: 20210317, end: 20210607
  65. PANTOPRAZOLE SODIUM [Concomitant]
     Active Substance: PANTOPRAZOLE SODIUM
     Indication: Gastrointestinal disorder
     Dates: start: 20210608, end: 20210610
  66. PANTOPRAZOLE SODIUM [Concomitant]
     Active Substance: PANTOPRAZOLE SODIUM
     Indication: Gastrointestinal disorder
     Dates: start: 20210618, end: 20210623
  67. LOVENOX [Concomitant]
     Active Substance: ENOXAPARIN SODIUM
     Dates: start: 20170224, end: 20171130
  68. Oleovit [Concomitant]
     Route: 048
     Dates: start: 20170329, end: 20210615
  69. Neriforte [Concomitant]
     Route: 061
     Dates: start: 20200430, end: 20200515
  70. FENTANYL [Concomitant]
     Active Substance: FENTANYL
     Route: 062
     Dates: start: 20200515
  71. OLIVE OIL [Concomitant]
     Active Substance: OLIVE OIL
     Dates: start: 20191002, end: 20200512
  72. Leukichtan [Concomitant]
     Route: 061
     Dates: start: 20200430, end: 20200515
  73. XGEVA [Concomitant]
     Active Substance: DENOSUMAB
     Dates: start: 20170202, end: 20210521
  74. Furosemid (Lasix) [Concomitant]
     Dates: start: 20170611, end: 20170809
  75. Furosemid (Lasix) [Concomitant]
     Route: 048
     Dates: start: 20170713, end: 20170809
  76. Furosemid (Lasix) [Concomitant]
     Dosage: ONGOING = NOT CHECKED
     Dates: start: 20170810, end: 20171213
  77. Furosemid (Lasix) [Concomitant]
     Route: 048
     Dates: start: 20170810, end: 20190212
  78. Paracetamol (MEXALEN) [Concomitant]
     Dates: start: 20200506, end: 20201215
  79. Paracetamol (MEXALEN) [Concomitant]
     Dates: start: 20210622, end: 20210622
  80. Kalioral [Concomitant]
     Route: 048
     Dates: start: 20200427, end: 20200428
  81. Kalioral [Concomitant]
     Dates: start: 20200608, end: 20200609
  82. PREGABALIN [Concomitant]
     Active Substance: PREGABALIN
     Route: 048
     Dates: start: 20170428, end: 20180123
  83. PREGABALIN [Concomitant]
     Active Substance: PREGABALIN
     Dates: start: 20190821, end: 20210616
  84. Novalgin [Concomitant]
     Route: 048
     Dates: start: 20170329, end: 20180807
  85. Novalgin [Concomitant]
     Dates: start: 20210608, end: 20210612
  86. Novalgin [Concomitant]
     Dates: start: 20210618, end: 20210618
  87. LEVOFLOXACIN [Concomitant]
     Active Substance: LEVOFLOXACIN
     Dates: start: 20200506, end: 20200512
  88. Ondansetron (Zofran, Ondansan) [Concomitant]
     Indication: Gastrointestinal disorder
     Route: 048
     Dates: start: 20170329, end: 20170809
  89. Ondansetron (Zofran, Ondansan) [Concomitant]
     Indication: Gastrointestinal disorder
     Dates: start: 20200506, end: 20201215
  90. Ondansetron (Zofran, Ondansan) [Concomitant]
     Indication: Gastrointestinal disorder
     Dates: start: 20210608, end: 20210610
  91. Ondansetron (Zofran, Ondansan) [Concomitant]
     Indication: Gastrointestinal disorder
     Dates: start: 20210611, end: 20210616
  92. KCL [Concomitant]
     Active Substance: POTASSIUM CHLORIDE
     Route: 048
     Dates: start: 20170429, end: 20190305
  93. BETAISODONA [Concomitant]
     Active Substance: POVIDONE-IODINE
     Dates: start: 20200430, end: 20200515
  94. EUTHYROX [Concomitant]
     Active Substance: LEVOTHYROXINE SODIUM
     Route: 048
     Dates: start: 20170303, end: 20210615
  95. SILICON [Concomitant]
     Active Substance: SILICON
     Dates: start: 20200521, end: 20200602
  96. DEXAMETHASONE [Concomitant]
     Active Substance: DEXAMETHASONE
     Dates: start: 20170104, end: 20170106
  97. DEXAMETHASONE [Concomitant]
     Active Substance: DEXAMETHASONE
     Dates: start: 20170107, end: 20170108
  98. DEXAMETHASONE [Concomitant]
     Active Substance: DEXAMETHASONE
     Route: 048
     Dates: start: 20171004, end: 20171006
  99. DEXAMETHASONE [Concomitant]
     Active Substance: DEXAMETHASONE
     Dates: start: 20200609, end: 20200609
  100. DEXAMETHASONE [Concomitant]
     Active Substance: DEXAMETHASONE
     Dates: start: 20210614, end: 20210623
  101. LACTULOSE [Concomitant]
     Active Substance: LACTULOSE
  102. VITAMIN C [Concomitant]
     Active Substance: ASCORBIC ACID
     Indication: Gastrointestinal disorder
     Dates: start: 20210611, end: 20210614
  103. CETYLPYRIDINIUM CHLORIDE (HALSET) [Concomitant]
     Indication: Cough
     Dates: start: 20210611, end: 20210615
  104. DROPERIDOL (XOMOLIX) [Concomitant]
     Indication: Gastrointestinal disorder
     Dates: start: 20210612, end: 20210617
  105. SCOTTOPECT [Concomitant]
     Indication: Cough
     Dates: start: 20210611, end: 20210613
  106. MORPHINE (VENDAL) [Concomitant]
     Indication: Dyspnoea
     Dates: start: 20210521, end: 20210616
  107. MORPHINE (VENDAL) [Concomitant]
     Indication: Dyspnoea
     Dates: start: 20210616, end: 20210623
  108. DROPERIDOL (PONVERIDOL) [Concomitant]
     Indication: Gastrointestinal disorder
     Dates: start: 20210618, end: 20210623
  109. HYOSCINE BUTYLBROMIDE (BUSCOPAN) [Concomitant]
     Indication: Gastrointestinal disorder
     Dates: start: 20210618, end: 20210618
  110. DRONABINOL [Concomitant]
     Active Substance: DRONABINOL
     Dates: start: 20210608, end: 20210612
  111. DIHYDROCODEINE (PARACODIN) [Concomitant]
     Indication: Cough
     Route: 048
     Dates: start: 20170708, end: 20170709
  112. DIHYDROCODEINE (PARACODIN) [Concomitant]
     Indication: Cough
     Dates: start: 20210428, end: 20210615
  113. PEGFILGRASTIM (ZIEXTENZO) [Concomitant]
     Dates: start: 20210610, end: 20210610
  114. POLYETHYLENE GLYCOL 3350\POTASSIUM CHLORIDE\SODIUM BICARBONATE\SODIUM [Concomitant]
     Active Substance: POLYETHYLENE GLYCOL 3350\POTASSIUM CHLORIDE\SODIUM BICARBONATE\SODIUM CHLORIDE
     Route: 048
     Dates: start: 20170709, end: 20170709
  115. POLYETHYLENE GLYCOL 3350\POTASSIUM CHLORIDE\SODIUM BICARBONATE\SODIUM [Concomitant]
     Active Substance: POLYETHYLENE GLYCOL 3350\POTASSIUM CHLORIDE\SODIUM BICARBONATE\SODIUM CHLORIDE
     Dates: start: 20210608, end: 20210616
  116. HYDROMORPHONE HYDROCHLORIDE (HYDAL) [Concomitant]
     Dates: start: 20210611, end: 20210615
  117. BETAMETHASONE DIPROPIONATE (DIPRODERM) [Concomitant]
     Route: 061
     Dates: start: 20191122, end: 20191215
  118. HYALURONATE SODIUM (HYLO COMOD) [Concomitant]
  119. LORAZEPAM (TEMESTA) [Concomitant]
     Dates: start: 20210611, end: 20210621
  120. LORAZEPAM (TEMESTA) [Concomitant]
     Dates: start: 20210618, end: 20210623
  121. ALPRAZOLAM (XANOR) [Concomitant]
     Dates: start: 20210613, end: 20210615
  122. AMPHOTERICIN B (AMPHO-MORAL) [Concomitant]
  123. FILGRASTIM (ZARZIO, RATIOGRASTIM) [Concomitant]
     Route: 058
     Dates: start: 20170704, end: 20170708
  124. FILGRASTIM (ZARZIO, RATIOGRASTIM) [Concomitant]
     Dates: start: 20200701
  125. CARMELLOSE SODIUM (AQUACEL) [Concomitant]
     Dates: start: 20210105, end: 20210413
  126. LIDOCAINE (VERSATIS) [Concomitant]
     Dates: start: 20200610, end: 20200610
  127. CEFEPIME [Concomitant]
     Active Substance: CEFEPIME HYDROCHLORIDE
  128. AMOXICILLIN, CLAVULANIC ACID (CURAM, AUGMENTIN) [Concomitant]
     Indication: Product used for unknown indication
     Dates: start: 20170710, end: 20170710
  129. AMOXICILLIN, CLAVULANIC ACID (CURAM, AUGMENTIN) [Concomitant]
     Indication: Product used for unknown indication
     Route: 048
     Dates: start: 20170711, end: 20170713
  130. AMOXICILLIN, CLAVULANIC ACID (CURAM, AUGMENTIN) [Concomitant]
     Indication: Product used for unknown indication
     Dates: start: 20200604, end: 20200605
  131. TRAZODONE HYDROCHLORIDE (TRITTICO) [Concomitant]
     Route: 048
     Dates: start: 20190731, end: 20190910
  132. TRIMETHOPRIM (MOTRIM) [Concomitant]
     Route: 048
     Dates: start: 20190619, end: 20190623
  133. AMOXICILLIN TRIHYDRATE, CLAVULANATE POTASSIUM (XICLAV) [Concomitant]
     Indication: Product used for unknown indication
     Route: 048
     Dates: start: 20181218, end: 20181222
  134. PIPERACILLIN SODIUM, TAZOBACTAM SODIUM (TAZONAM) [Concomitant]
     Route: 042
     Dates: start: 20170708, end: 20170710
  135. ACTIMARIS [OXYGEN, SEA WATER] [Concomitant]
     Dates: start: 20200108, end: 20200128

REACTIONS (21)
  - Streptococcal sepsis [Recovered/Resolved]
  - Pseudomonal sepsis [Recovered/Resolved]
  - Brain oedema [Not Recovered/Not Resolved]
  - Metastases to lymph nodes [Not Recovered/Not Resolved]
  - Vascular device infection [Recovered/Resolved]
  - Metastases to central nervous system [Not Recovered/Not Resolved]
  - Restlessness [Not Recovered/Not Resolved]
  - C-reactive protein increased [Not Recovered/Not Resolved]
  - Candida infection [Recovered/Resolved]
  - Nail bed inflammation [Not Recovered/Not Resolved]
  - Fatigue [Recovered/Resolved]
  - Pleural effusion [Recovered/Resolved]
  - Skin fissures [Recovered/Resolved]
  - Paronychia [Recovered/Resolved]
  - Eczema [Not Recovered/Not Resolved]
  - Nasal mucosal disorder [Recovered/Resolved]
  - Varicose vein [Not Recovered/Not Resolved]
  - Back pain [Recovered/Resolved]
  - Nausea [Recovered/Resolved]
  - Vomiting [Recovered/Resolved]
  - Intentional product use issue [Unknown]

NARRATIVE: CASE EVENT DATE: 20170921
